FAERS Safety Report 20101235 (Version 1)
Quarter: 2021Q4

REPORT INFORMATION
  Report Type: Spontaneous
  Country: CA (occurrence: CA)
  Receive Date: 20211123
  Receipt Date: 20211123
  Transmission Date: 20220303
  Serious: Yes (Other)
  Sender: FDA-Public Use
  Company Number: CA-NOVARTISPH-NVSC2021CA262035

PATIENT
  Sex: Female

DRUGS (1)
  1. METHOTREXATE [Suspect]
     Active Substance: METHOTREXATE
     Indication: Product used for unknown indication
     Dosage: 1 DF
     Route: 065

REACTIONS (7)
  - Haematochezia [Unknown]
  - Mouth ulceration [Unknown]
  - Skin ulcer [Unknown]
  - Fatigue [Unknown]
  - Diarrhoea [Unknown]
  - Synovitis [Unknown]
  - Treatment failure [Unknown]
